FAERS Safety Report 24133385 (Version 1)
Quarter: 2024Q3

REPORT INFORMATION
  Report Type: Spontaneous
  Country: US (occurrence: US)
  Receive Date: 20240724
  Receipt Date: 20240724
  Transmission Date: 20241016
  Serious: No
  Sender: LEXICON PHARMACEUTICALS
  Company Number: US-LEX-000365

PATIENT
  Age: 64 Year
  Sex: Male

DRUGS (1)
  1. INPEFA [Suspect]
     Active Substance: SOTAGLIFLOZIN
     Indication: Cardiac disorder
     Route: 048
     Dates: start: 202406, end: 202406

REACTIONS (2)
  - Urticaria [Recovered/Resolved]
  - Fungal infection [Recovered/Resolved]

NARRATIVE: CASE EVENT DATE: 20240601
